FAERS Safety Report 9851665 (Version 28)
Quarter: 2021Q1

REPORT INFORMATION
  Report Type: Other
  Country: CA (occurrence: CA)
  Receive Date: 20140129
  Receipt Date: 20210327
  Transmission Date: 20210420
  Serious: Yes (Other)
  Sender: FDA-Public Use
  Company Number: CA-ROCHE-1193330

PATIENT
  Age: 60 Year
  Sex: Female
  Weight: 71 kg

DRUGS (16)
  1. ACTEMRA [Suspect]
     Active Substance: TOCILIZUMAB
     Dosage: NO PIRS RECEIVED BETWEEN 17?JAN?2017 TO 19?JUN?2018. DOSAGE REMAINED THE SAME?PER PRESCRIPTION ENROL
     Route: 042
     Dates: start: 20121121, end: 20190130
  2. ACTEMRA [Suspect]
     Active Substance: TOCILIZUMAB
     Route: 042
     Dates: start: 20111122, end: 20111122
  3. ACTEMRA [Suspect]
     Active Substance: TOCILIZUMAB
     Dosage: INFUSION NUMBER 89
     Route: 042
     Dates: start: 20180523
  4. FOLIC ACID. [Concomitant]
     Active Substance: FOLIC ACID
  5. PROLIA [Concomitant]
     Active Substance: DENOSUMAB
     Route: 058
  6. ACTEMRA [Suspect]
     Active Substance: TOCILIZUMAB
     Route: 042
     Dates: start: 20111221, end: 20121023
  7. ACTEMRA [Suspect]
     Active Substance: TOCILIZUMAB
     Route: 042
     Dates: start: 20180911
  8. CALCIUM [Concomitant]
     Active Substance: CALCIUM
     Dosage: ONGOING, 500MG/1,000UI
     Route: 048
  9. ACTEMRA [Suspect]
     Active Substance: TOCILIZUMAB
     Dosage: FIRST RPAP
     Route: 042
     Dates: start: 20101230, end: 20111031
  10. ACTEMRA [Suspect]
     Active Substance: TOCILIZUMAB
     Route: 042
     Dates: start: 20190226, end: 20191001
  11. METHOTREXATE. [Concomitant]
     Active Substance: METHOTREXATE
  12. NAPROXEN. [Concomitant]
     Active Substance: NAPROXEN
     Route: 048
  13. ACTEMRA [Suspect]
     Active Substance: TOCILIZUMAB
     Indication: RHEUMATOID ARTHRITIS
     Route: 042
     Dates: start: 200509, end: 20101203
  14. ACTEMRA [Suspect]
     Active Substance: TOCILIZUMAB
     Route: 042
     Dates: start: 20201029
  15. ACTEMRA [Suspect]
     Active Substance: TOCILIZUMAB
     Dosage: 87 TH INFUSION
     Route: 042
     Dates: start: 20171221
  16. SYNTHROID [Concomitant]
     Active Substance: LEVOTHYROXINE SODIUM
     Route: 048

REACTIONS (30)
  - Arthralgia [Unknown]
  - Oxygen saturation decreased [Unknown]
  - Influenza [Unknown]
  - Vein rupture [Unknown]
  - Blood pressure systolic increased [Unknown]
  - Oropharyngeal pain [Not Recovered/Not Resolved]
  - Off label use [Unknown]
  - Laryngitis [Not Recovered/Not Resolved]
  - Blood pressure diastolic abnormal [Unknown]
  - Fibula fracture [Unknown]
  - Sputum discoloured [Not Recovered/Not Resolved]
  - Nasopharyngitis [Not Recovered/Not Resolved]
  - Blood pressure diastolic abnormal [Unknown]
  - Incorrect dose administered [Unknown]
  - Acetabulum fracture [Unknown]
  - Fall [Unknown]
  - Diverticulitis [Not Recovered/Not Resolved]
  - Body temperature decreased [Unknown]
  - Blood pressure increased [Unknown]
  - Weight increased [Recovering/Resolving]
  - Blood pressure diastolic decreased [Unknown]
  - Blood pressure diastolic increased [Unknown]
  - Peripheral artery occlusion [Unknown]
  - Blood pressure increased [Unknown]
  - Arthritis [Unknown]
  - Nasopharyngitis [Not Recovered/Not Resolved]
  - Ear infection [Unknown]
  - Poor venous access [Unknown]
  - Heart rate increased [Unknown]
  - Intentional product use issue [Unknown]

NARRATIVE: CASE EVENT DATE: 20130208
